FAERS Safety Report 9443380 (Version 2)
Quarter: 2013Q3

REPORT INFORMATION
  Report Type: Spontaneous
  Country: SE (occurrence: SE)
  Receive Date: 20130806
  Receipt Date: 20130926
  Transmission Date: 20140515
  Serious: Yes (Hospitalization, Other)
  Sender: FDA-Public Use
  Company Number: PHHY2013SE083746

PATIENT
  Sex: Female

DRUGS (5)
  1. RITALIN [Suspect]
     Indication: ATTENTION DEFICIT/HYPERACTIVITY DISORDER
     Dosage: UNK UKN, UNK
  2. DRUG THERAPY NOS [Concomitant]
     Indication: HYPERTENSION
     Dosage: UNK UKN, UNK
  3. FELODIPIN [Concomitant]
     Dosage: 7.5 MG, UNK
     Dates: start: 20130619
  4. ENALAPRIL [Concomitant]
     Dosage: 10 MG (X2), UNK
     Dates: start: 20130619
  5. TROMBYL [Concomitant]
     Dosage: 75 MG, UNK
     Dates: start: 20130619

REACTIONS (3)
  - Renal infarct [Unknown]
  - Pain [Unknown]
  - Discomfort [Unknown]
